FAERS Safety Report 18700987 (Version 1)
Quarter: 2021Q1

REPORT INFORMATION
  Report Type: Spontaneous
  Country: US (occurrence: US)
  Receive Date: 20210104
  Receipt Date: 20210104
  Transmission Date: 20210419
  Serious: Yes (Disabling)
  Sender: FDA-Public Use
  Company Number: None

PATIENT
  Age: 64 Year
  Sex: Male
  Weight: 72 kg

DRUGS (2)
  1. BACTRIM [Suspect]
     Active Substance: SULFAMETHOXAZOLE\TRIMETHOPRIM
     Indication: INFECTION
     Route: 048
     Dates: start: 20201116, end: 20201127
  2. DOXIZOSIN 8MG [Concomitant]

REACTIONS (3)
  - Meningitis aseptic [None]
  - Lethargy [None]
  - Rash [None]

NARRATIVE: CASE EVENT DATE: 20201130
